FAERS Safety Report 11275166 (Version 2)
Quarter: 2015Q3

REPORT INFORMATION
  Report Type: Spontaneous
  Country: GB (occurrence: None)
  Receive Date: 20150714
  Receipt Date: 20150728
  Transmission Date: 20151125
  Serious: Yes (Hospitalization)
  Sender: FDA-Public Use
  Company Number: 2015FE02312

PATIENT
  Age: 62 Year
  Sex: Female

DRUGS (1)
  1. PICOLAX [Suspect]
     Active Substance: CITRIC ACID MONOHYDRATE\MAGNESIUM OXIDE\SODIUM PICOSULFATE
     Indication: BOWEL PREPARATION
     Dosage: 1 SACHET
     Route: 048
     Dates: start: 20150624

REACTIONS (10)
  - Malaise [None]
  - Aggression [None]
  - Vomiting [None]
  - Staring [None]
  - Feeling abnormal [None]
  - Cyst [None]
  - Seizure [None]
  - Vision blurred [None]
  - Hyponatraemia [None]
  - Confusional state [None]

NARRATIVE: CASE EVENT DATE: 20150624
